FAERS Safety Report 12449439 (Version 1)
Quarter: 2016Q2

REPORT INFORMATION
  Report Type: Spontaneous
  Country: AU (occurrence: AU)
  Receive Date: 20160608
  Receipt Date: 20160608
  Transmission Date: 20160815
  Serious: Yes (Hospitalization, Other)
  Sender: FDA-Public Use
  Company Number: AU-APOTEX-2016AP008894

PATIENT
  Age: 23 Year
  Sex: Female
  Weight: 52 kg

DRUGS (8)
  1. NORMAL SALINE [Concomitant]
     Active Substance: SODIUM CHLORIDE
     Indication: PRODUCT USED FOR UNKNOWN INDICATION
     Dosage: 20ML OF 1% ROPIVACAINE(200MG, 3.85MG/KG) AND ADRENALIN (1MG) DILUTED IN 200ML NORMAL SALINE
     Route: 050
  2. ADRENALINE                         /00003901/ [Concomitant]
     Active Substance: EPINEPHRINE
     Indication: PRODUCT USED FOR UNKNOWN INDICATION
     Dosage: 20ML OF 1% ROPIVACAINE(200MG, 3.85MG/KG) AND ADRENALIN (1MG) DILUTED IN 200ML NORMAL SALINE
     Route: 050
  3. FENTANYL. [Suspect]
     Active Substance: FENTANYL
     Indication: SEDATION
     Dosage: UNK
     Route: 040
  4. PROPOFOL. [Suspect]
     Active Substance: PROPOFOL
     Indication: SEDATIVE THERAPY
     Dosage: UNK
     Route: 040
  5. ROPIVACAINE [Suspect]
     Active Substance: ROPIVACAINE
     Indication: LOCAL ANAESTHESIA
     Dosage: 20ML OF 1% ROPIVACAINE(200MG, 3.85MG/KG) AND ADRENALIN (1MG) DILUTED IN 200ML NORMAL SALINE
     Route: 050
  6. MIDAZOLAM [Suspect]
     Active Substance: MIDAZOLAM\MIDAZOLAM HYDROCHLORIDE
     Indication: SEDATIVE THERAPY
     Dosage: UNK
     Route: 040
  7. MIDAZOLAM [Suspect]
     Active Substance: MIDAZOLAM\MIDAZOLAM HYDROCHLORIDE
     Dosage: 5 MG, UNK
     Route: 042
  8. DEXMEDETOMIDINE. [Suspect]
     Active Substance: DEXMEDETOMIDINE
     Indication: SEDATIVE THERAPY
     Dosage: UNK
     Route: 040

REACTIONS (8)
  - Vaginal haemorrhage [Unknown]
  - Loss of consciousness [Recovered/Resolved]
  - Hypertonia [Unknown]
  - Unresponsive to stimuli [Recovered/Resolved]
  - Toxicity to various agents [Recovered/Resolved]
  - Exposure during pregnancy [Unknown]
  - Partial seizures [Recovered/Resolved]
  - Generalised tonic-clonic seizure [Recovered/Resolved]
